FAERS Safety Report 19790285 (Version 1)
Quarter: 2021Q3

REPORT INFORMATION
  Report Type: Spontaneous
  Country: KR (occurrence: KR)
  Receive Date: 20210906
  Receipt Date: 20210906
  Transmission Date: 20211014
  Serious: Yes (Hospitalization, Other)
  Sender: FDA-Public Use
  Company Number: KR-ASTRAZENECA-2021A706363

PATIENT
  Age: 69 Year
  Sex: Female

DRUGS (1)
  1. IMFINZI [Suspect]
     Active Substance: DURVALUMAB
     Route: 042
     Dates: start: 20210204

REACTIONS (4)
  - Radiation oesophagitis [Not Recovered/Not Resolved]
  - Empyema [Unknown]
  - Pneumothorax [Unknown]
  - Pyrexia [Unknown]

NARRATIVE: CASE EVENT DATE: 20210727
